FAERS Safety Report 10257140 (Version 1)
Quarter: 2014Q2

REPORT INFORMATION
  Report Type: Spontaneous
  Country: DE (occurrence: DE)
  Receive Date: 20140625
  Receipt Date: 20140625
  Transmission Date: 20141212
  Serious: Yes (Other)
  Sender: FDA-Public Use
  Company Number: DE-DRREDDYS-GER/GER/14/0041297

PATIENT
  Age: 25 Year
  Sex: Female
  Weight: 82 kg

DRUGS (6)
  1. CETIRIZINE [Suspect]
     Indication: PRURITUS
     Route: 048
  2. AZATHIOPRINE [Suspect]
     Indication: COLITIS ULCERATIVE
     Route: 048
  3. LEVOTHYROXINE SODIUM [Suspect]
     Indication: HYPOTHYROIDISM
     Route: 048
     Dates: start: 20130204, end: 20131112
  4. PENTASA XTEND [Suspect]
     Indication: COLITIS ULCERATIVE
     Route: 048
     Dates: start: 20130204, end: 20131112
  5. DERMATOP [Concomitant]
     Indication: PRURITUS
     Route: 003
  6. FOLIO [Concomitant]
     Indication: PROPHYLAXIS OF NEURAL TUBE DEFECT
     Dosage: 4 MG PER DAY
     Route: 048
     Dates: start: 20130204, end: 20131112

REACTIONS (3)
  - Hepatitis [Unknown]
  - Exposure during pregnancy [Unknown]
  - Pruritus [Unknown]
